FAERS Safety Report 13122113 (Version 1)
Quarter: 2017Q1

REPORT INFORMATION
  Report Type: Spontaneous
  Country: ZA (occurrence: ZA)
  Receive Date: 20170117
  Receipt Date: 20170117
  Transmission Date: 20170428
  Serious: Yes (Other)
  Sender: FDA-Public Use
  Company Number: PHHY2017ZA005294

PATIENT
  Age: 72 Year
  Sex: Female

DRUGS (1)
  1. ACLASTA [Suspect]
     Active Substance: ZOLEDRONIC ACID
     Indication: OSTEOPOROSIS
     Dosage: 1 DF, Q12MO
     Route: 041
     Dates: start: 2016

REACTIONS (3)
  - Chills [Unknown]
  - Cardiac failure [Unknown]
  - Circulatory collapse [Unknown]

NARRATIVE: CASE EVENT DATE: 2016
